FAERS Safety Report 13380079 (Version 1)
Quarter: 2017Q1

REPORT INFORMATION
  Report Type: Spontaneous
  Country: US (occurrence: US)
  Receive Date: 20170328
  Receipt Date: 20170328
  Transmission Date: 20170429
  Serious: Yes (Hospitalization, Other)
  Sender: FDA-Public Use
  Company Number: US-VIFOR (INTERNATIONAL) INC.-VIT-2017-00332

PATIENT
  Age: 76 Year
  Sex: Male

DRUGS (12)
  1. TYLENOL [Concomitant]
     Active Substance: ACETAMINOPHEN
  2. PANTOPRAZOLE SODIUM SESQUIHYDRATE [Concomitant]
     Active Substance: PANTOPRAZOLE SODIUM
  3. ERGOCALCIFEROL. [Concomitant]
     Active Substance: ERGOCALCIFEROL
  4. CENTRUM SILVER [Concomitant]
     Active Substance: MINERALS\VITAMINS
  5. LISINOPRIL. [Concomitant]
     Active Substance: LISINOPRIL
  6. TAMSULOSIN HYDROCHLORIDE. [Concomitant]
     Active Substance: TAMSULOSIN HYDROCHLORIDE
  7. SIMVASTATIN. [Concomitant]
     Active Substance: SIMVASTATIN
  8. AMLODIPINE BESILATE [Concomitant]
     Active Substance: AMLODIPINE BESYLATE
  9. TROSPIUM CHLORIDE. [Concomitant]
     Active Substance: TROSPIUM CHLORIDE
  10. FUROSEMIDE. [Concomitant]
     Active Substance: FUROSEMIDE
  11. VELTASSA [Suspect]
     Active Substance: PATIROMER
     Indication: HYPERKALAEMIA
     Route: 048
     Dates: start: 20161221, end: 20170105
  12. IRON [Concomitant]
     Active Substance: IRON

REACTIONS (7)
  - Atrial fibrillation [Unknown]
  - Fatigue [Unknown]
  - Cardiac operation [Unknown]
  - Heart valve stenosis [Unknown]
  - Dyspnoea [Unknown]
  - Pericardial haemorrhage [Unknown]
  - Chest discomfort [Unknown]

NARRATIVE: CASE EVENT DATE: 2017
